FAERS Safety Report 4839551-4 (Version None)
Quarter: 2005Q4

REPORT INFORMATION
  Report Type: 
  Country: None (occurrence: None)
  Receive Date: 20051129
  Receipt Date: 20051118
  Transmission Date: 20060501
  Serious: Yes (Hospitalization, Disabling)
  Sender: FDA-Public Use
  Company Number: US-MERCK-0511USA03505

PATIENT
  Age: 53 Year
  Sex: Male
  Weight: 82 kg

DRUGS (8)
  1. VIOXX [Suspect]
     Indication: ARTHRALGIA
     Route: 048
  2. VIOXX [Suspect]
     Route: 048
  3. VIOXX [Suspect]
     Route: 048
  4. ROBITUSSIN [Concomitant]
     Route: 065
  5. NYQUIL [Concomitant]
     Route: 065
  6. BENADRYL [Concomitant]
     Route: 065
  7. TYLENOL W/ CODEINE NO. 3 [Concomitant]
     Route: 065
  8. ANTIMICROBIAL (UNSPECIFIED) [Concomitant]
     Route: 065

REACTIONS (2)
  - DRUG ADMINISTRATION ERROR [None]
  - MYOCARDIAL INFARCTION [None]
